FAERS Safety Report 6080233-1 (Version None)
Quarter: 2009Q1

REPORT INFORMATION
  Report Type: 
  Country: None (occurrence: None)
  Receive Date: 20090217
  Receipt Date: 20090211
  Transmission Date: 20090719
  Serious: Yes (Other)
  Sender: FDA-Public Use
  Company Number: US-ELI_LILLY_AND_COMPANY-US200812000547

PATIENT
  Sex: Male

DRUGS (13)
  1. HUMALOG [Suspect]
  2. FUROSEMIDE [Concomitant]
  3. OMEPRAZOLE [Concomitant]
  4. PLAVIX [Concomitant]
  5. AMITRIPTYLINE HCL [Concomitant]
  6. VYTORIN [Concomitant]
  7. LANTUS [Concomitant]
  8. TOPROL-XL [Concomitant]
  9. CATAPRES /UNK/ [Concomitant]
  10. LISINOPRIL [Concomitant]
  11. AVAPRO [Concomitant]
  12. NIFEDIPINE [Concomitant]
  13. IMDUR [Concomitant]

REACTIONS (1)
  - VITREOUS HAEMORRHAGE [None]
